FAERS Safety Report 8336445 (Version 2)
Quarter: 2013Q1

REPORT INFORMATION
  Report Type: Spontaneous
  Country: RU (occurrence: None)
  Receive Date: 20120105
  Receipt Date: 20130215
  Transmission Date: 20140127
  Serious: Yes (Death, Hospitalization)
  Sender: FDA-Public Use
  Company Number: MPS1-1000619

PATIENT
  Age: 10 Year
  Sex: Male

DRUGS (4)
  1. ALDURAZYME [Suspect]
     Indication: MUCOPOLYSACCHARIDOSIS I
     Dosage: 3.5 VIALS, INTRAVENOUS
     Route: 042
     Dates: start: 200705
  2. POTASSIUM ASPARTATE (POTASSIUM ASPARTATE) [Concomitant]
  3. MAGNESIUM ASPARTATE (MAGNESIUM ASPARTATE) [Concomitant]
  4. CAPTOPRIL (CAPTOPRIL) [Concomitant]

REACTIONS (9)
  - Circulatory collapse [None]
  - Hypothermia [None]
  - Malaise [None]
  - Bronchitis chronic [None]
  - Condition aggravated [None]
  - Cardiac failure [None]
  - Shock [None]
  - Headache [None]
  - Pyrexia [None]
